FAERS Safety Report 8479266-7 (Version None)
Quarter: 2012Q2

REPORT INFORMATION
  Report Type: 
  Country: None (occurrence: None)
  Receive Date: 20120629
  Receipt Date: 20120620
  Transmission Date: 20120825
  Serious: Yes (Death)
  Sender: FDA-Public Use
  Company Number: US-GLAXOSMITHKLINE-A0980277A

PATIENT
  Age: 54 Year
  Sex: Female
  Weight: 54.1 kg

DRUGS (5)
  1. DILTIAZEM [Concomitant]
  2. LISINOPRIL [Concomitant]
  3. PROTONIX [Concomitant]
  4. CALCIUM [Concomitant]
  5. TYKERB [Suspect]
     Indication: BREAST CANCER
     Dosage: 1250MG PER DAY
     Route: 048
     Dates: start: 20120213, end: 20120525

REACTIONS (1)
  - BREAST CANCER METASTATIC [None]
